FAERS Safety Report 7502805-7 (Version None)
Quarter: 2011Q2

REPORT INFORMATION
  Report Type: 
  Country: None (occurrence: None)
  Receive Date: 20110525
  Receipt Date: 20110519
  Transmission Date: 20111010
  Serious: Yes (Death)
  Sender: FDA-Public Use
  Company Number: US-GENZYME-THYM-1002485

PATIENT
  Age: 63 Year
  Sex: Male

DRUGS (6)
  1. THYMOGLOBULIN [Suspect]
     Indication: KIDNEY TRANSPLANT REJECTION
     Route: 042
  2. IMMUNE GLOBULIN NOS [Concomitant]
     Indication: KIDNEY TRANSPLANT REJECTION
     Route: 042
  3. THYMOGLOBULIN [Suspect]
     Indication: TRANSPLANT REJECTION
  4. IMMUNE GLOBULIN NOS [Concomitant]
     Indication: TRANSPLANT REJECTION
  5. SOLU-MEDROL [Concomitant]
     Indication: KIDNEY TRANSPLANT REJECTION
     Route: 065
  6. SOLU-MEDROL [Concomitant]
     Indication: TRANSPLANT REJECTION

REACTIONS (2)
  - DIFFUSE LARGE B-CELL LYMPHOMA [None]
  - MULTIPLE MYELOMA [None]
